FAERS Safety Report 4889616-6 (Version None)
Quarter: 2006Q1

REPORT INFORMATION
  Report Type: 
  Country: None (occurrence: None)
  Receive Date: 20060124
  Receipt Date: 20060119
  Transmission Date: 20060701
  Serious: Yes (Other)
  Sender: FDA-Public Use
  Company Number: US-GLAXOSMITHKLINE-A0590058A

PATIENT
  Age: 70 Year
  Sex: Female

DRUGS (3)
  1. AVANDIA [Suspect]
     Dosage: 4MG PER DAY
     Route: 048
  2. LOPRESSOR [Concomitant]
  3. COZAAR [Concomitant]

REACTIONS (1)
  - VISUAL ACUITY REDUCED [None]
